FAERS Safety Report 10479920 (Version 2)
Quarter: 2014Q4

REPORT INFORMATION
  Report Type: Spontaneous
  Country: CA (occurrence: CA)
  Receive Date: 20140929
  Receipt Date: 20141114
  Transmission Date: 20150528
  Serious: Yes (Hospitalization)
  Sender: FDA-Public Use
  Company Number: CA-ROCHE-1466910

PATIENT
  Age: 47 Year
  Sex: Female

DRUGS (1)
  1. XOLAIR [Suspect]
     Active Substance: OMALIZUMAB
     Indication: ASTHMA
     Route: 058
     Dates: start: 20140404

REACTIONS (10)
  - Viraemia [Unknown]
  - Malaise [Unknown]
  - Neck pain [Unknown]
  - Headache [Unknown]
  - Fatigue [Recovering/Resolving]
  - Back pain [Unknown]
  - Pyrexia [Unknown]
  - Dyspnoea [Unknown]
  - Pain [Unknown]
  - Nausea [Recovered/Resolved]

NARRATIVE: CASE EVENT DATE: 20140404
